FAERS Safety Report 13100799 (Version 1)
Quarter: 2017Q1

REPORT INFORMATION
  Report Type: Spontaneous
  Country: US (occurrence: US)
  Receive Date: 20170109
  Receipt Date: 20170109
  Transmission Date: 20170428
  Serious: Yes (Hospitalization)
  Sender: FDA-Public Use
  Company Number: None

PATIENT
  Age: 63 Year
  Sex: Male
  Weight: 92.3 kg

DRUGS (2)
  1. FOSINOPRIL [Suspect]
     Active Substance: FOSINOPRIL
     Indication: HYPERTENSION
     Route: 048
     Dates: start: 20141114, end: 20160908
  2. SONIDEGIB [Suspect]
     Active Substance: SONIDEGIB
     Indication: HEPATITIS C
     Dates: start: 20160811, end: 20160819

REACTIONS (2)
  - Rash [None]
  - Angioedema [None]

NARRATIVE: CASE EVENT DATE: 20161116
